FAERS Safety Report 25448366 (Version 1)
Quarter: 2025Q2

REPORT INFORMATION
  Report Type: Report from Study
  Country: US (occurrence: US)
  Receive Date: 20250617
  Receipt Date: 20250617
  Transmission Date: 20250717
  Serious: Yes (Other)
  Sender: ABBVIE
  Company Number: US-ABBVIE-6319910

PATIENT
  Age: 90 Year
  Sex: Female

DRUGS (17)
  1. VENCLEXTA [Suspect]
     Active Substance: VENETOCLAX
     Indication: Chronic lymphocytic leukaemia
     Dosage: STRENGTH 100 MG, WEEK 3
     Route: 048
  2. VENCLEXTA [Suspect]
     Active Substance: VENETOCLAX
     Indication: Chronic lymphocytic leukaemia
     Dosage: WEEK 1, FORM STRENGTH 10 MG
     Route: 048
     Dates: start: 20220805
  3. VENCLEXTA [Suspect]
     Active Substance: VENETOCLAX
     Indication: Chronic lymphocytic leukaemia
     Dosage: WEEK 2, FORM STRENGTH 50 MG
     Route: 048
  4. VENCLEXTA [Suspect]
     Active Substance: VENETOCLAX
     Indication: Chronic lymphocytic leukaemia
     Dosage: WEEK 4, FORM STRENGTH 100 MG
     Route: 048
  5. VENCLEXTA [Suspect]
     Active Substance: VENETOCLAX
     Indication: Chronic lymphocytic leukaemia
     Route: 048
     Dates: end: 202409
  6. ACETAMINOPHEN [Concomitant]
     Active Substance: ACETAMINOPHEN
     Indication: Pain
     Route: 048
  7. ALLOPURINOL [Concomitant]
     Active Substance: ALLOPURINOL
     Indication: Product used for unknown indication
     Dosage: 1 TABLET(S) (300 MG) BY MOUTH ONCE DAILY
     Route: 048
  8. ALLOPURINOL [Concomitant]
     Active Substance: ALLOPURINOL
     Indication: Product used for unknown indication
     Dosage: PRESCRIBED, 100 MG, 1 TAB(S), ORAL, DAILY, 14 TAB(S), 0 REFILL
     Route: 048
  9. AMLODIPINE [Concomitant]
     Active Substance: AMLODIPINE BESYLATE
     Indication: Hypertension
     Dosage: 1 TABLET(S) (5 MG) BY MOUTH ONCE DAILY FOR HIGH BLOOD PRESSURE
     Route: 048
  10. ASCORBIC ACID [Concomitant]
     Active Substance: ASCORBIC ACID
     Indication: Product used for unknown indication
     Dosage: 1 TABLET(S) (500 MG) BY MOUTH ONCE DAILY
     Route: 048
  11. CHLORHEXIDINE GLUCONATE [Concomitant]
     Active Substance: CHLORHEXIDINE GLUCONATE
     Indication: Product used for unknown indication
     Dosage: CHLORHEXIDINE GLUCONATE MUCOUS MEMBRANE 0.12% MOUTHWASH?SIG: 15 MILLILITER(S) BY MOUTH UP TO TWIC...
     Route: 048
  12. DOCUSATE SODIUM [Concomitant]
     Active Substance: DOCUSATE SODIUM
     Indication: Constipation
     Dosage: 1 CAPSULE(S) (100 MG) BY MOUTH ONCE DAILY AS NEEDED CONSTIPATION
     Route: 048
  13. LEVOFLOXACIN [Concomitant]
     Active Substance: LEVOFLOXACIN
     Indication: Pneumonia
     Dosage: 1 TABLET(S) (500 MG) BY MOUTH ONCE DAILY PNEUMONIA
     Route: 048
  14. MELATONIN [Concomitant]
     Active Substance: MELATONIN
     Indication: Insomnia
     Dosage: 1 TABLET(S) (5 MG) BY MOUTH DAILY AT BEDTIME AS NEEDED FOR INSOMNIA
     Route: 048
  15. METOPROLOL TARTRATE [Concomitant]
     Active Substance: METOPROLOL TARTRATE
     Indication: Hypertension
     Dosage: 1 TABLET(S) (25 MG) BY MOUTH TWICE DAILY FOR HIGH BLOOD PRESSURE
     Route: 048
  16. NYSTATIN [Concomitant]
     Active Substance: NYSTATIN
     Indication: Fungal infection
     Dosage: 5 MILLILITER(S) BY MOUTH FOUR TIMES DAILY FUNGAL INFECTION DURATION: 5 DAYS SWISH AND SWALLOW
     Route: 048
  17. SIMVASTATIN [Concomitant]
     Active Substance: SIMVASTATIN
     Indication: Blood cholesterol
     Dosage: 1/2 TABLET(S) (20 MG) BY MOUTH DAILY AT BEDTIME FOR CHOLESTEROL
     Route: 048

REACTIONS (10)
  - Chronic lymphocytic leukaemia [Unknown]
  - Tooth fracture [Unknown]
  - Fatigue [Unknown]
  - Night sweats [Unknown]
  - Lymphocytosis [Unknown]
  - Platelet count decreased [Unknown]
  - Lymphadenopathy [Unknown]
  - B-cell small lymphocytic lymphoma [Unknown]
  - Polychromasia [Unknown]
  - Poikilocytosis [Unknown]
